FAERS Safety Report 6717463-9 (Version None)
Quarter: 2010Q2

REPORT INFORMATION
  Report Type: 
  Country: None (occurrence: None)
  Receive Date: 20100510
  Receipt Date: 20100503
  Transmission Date: 20101027
  Serious: Yes (Death, Other)
  Sender: FDA-Public Use
  Company Number: AR-ROCHE-700890

PATIENT
  Sex: Male

DRUGS (3)
  1. BEVACIZUMAB [Suspect]
     Indication: COLON CANCER
     Route: 042
     Dates: start: 20100204, end: 20100412
  2. CAPECITABINE [Suspect]
     Indication: COLON CANCER
     Dosage: FREQUENCY: 1-14 DAYS.
     Route: 048
     Dates: start: 20100204, end: 20100412
  3. OXALIPLATINO [Concomitant]
     Indication: COLON CANCER
     Dates: end: 20100412

REACTIONS (4)
  - DIARRHOEA [None]
  - HEPATIC FAILURE [None]
  - HYPERTENSION [None]
  - PALMAR-PLANTAR ERYTHRODYSAESTHESIA SYNDROME [None]
